FAERS Safety Report 9006209 (Version 1)
Quarter: 2013Q1

REPORT INFORMATION
  Report Type: Spontaneous
  Country: US (occurrence: US)
  Receive Date: 20130110
  Receipt Date: 20130110
  Transmission Date: 20140127
  Serious: Yes (Other)
  Sender: FDA-Public Use
  Company Number: US-009507513-0907USA03716

PATIENT
  Age: 7 Year
  Sex: Male
  Weight: 41.5 kg

DRUGS (1)
  1. SINGULAIR [Suspect]
     Indication: SLEEP APNOEA SYNDROME
     Dosage: 5 MG, QD
     Route: 048
     Dates: start: 20071109, end: 20071110

REACTIONS (2)
  - Abnormal behaviour [Recovered/Resolved]
  - Aggression [Recovered/Resolved]
